FAERS Safety Report 5693259-4 (Version None)
Quarter: 2008Q2

REPORT INFORMATION
  Report Type: 
  Country: None (occurrence: None)
  Receive Date: 20080403
  Receipt Date: 20080326
  Transmission Date: 20081010
  Serious: Yes (Other)
  Sender: FDA-Public Use
  Company Number: PHHY2008BR03964

PATIENT
  Age: 38 Year
  Sex: Female
  Weight: 55 kg

DRUGS (2)
  1. FORASEQ [Suspect]
     Indication: ASTHMA
     Dosage: 12/400 MCG, BOTH CAPSULES EVERY 12 HOURS
  2. FORASEQ [Suspect]
     Dosage: 12/400MCG, BOTH CAPSULES IN THE MORNING
     Dates: start: 20060901

REACTIONS (2)
  - DEPRESSION [None]
  - TREMOR [None]
